FAERS Safety Report 6545160-1 (Version None)
Quarter: 2010Q1

REPORT INFORMATION
  Report Type: 
  Country: None (occurrence: None)
  Receive Date: 20100121
  Receipt Date: 20100113
  Transmission Date: 20100710
  Serious: Yes (Hospitalization)
  Sender: FDA-Public Use
  Company Number: FR-BRISTOL-MYERS SQUIBB COMPANY-14940803

PATIENT
  Age: 52 Year
  Sex: Male

DRUGS (3)
  1. GLUCOPHAGE [Suspect]
     Indication: DIABETES MELLITUS
     Dosage: 30DEC09-08JAN10,9D 08JAN10-ONG;1700MG(850MG,2 IN 1 D)
     Route: 048
     Dates: start: 20091230
  2. APROVEL TABS [Concomitant]
     Dosage: FOR YEARS
     Route: 048
  3. AMAREL [Concomitant]
     Indication: DIABETES MELLITUS
     Dosage: TABS
     Route: 048

REACTIONS (3)
  - AGEUSIA [None]
  - DECREASED APPETITE [None]
  - FATIGUE [None]
